FAERS Safety Report 8533806-8 (Version None)
Quarter: 2012Q3

REPORT INFORMATION
  Report Type: 
  Country: None (occurrence: None)
  Receive Date: 20120724
  Receipt Date: 20120719
  Transmission Date: 20120928
  Serious: Yes (Other)
  Sender: FDA-Public Use
  Company Number: IE-009507513-1207IRL007778

PATIENT

DRUGS (4)
  1. SINGULAIR [Suspect]
     Dosage: 5 MG, QD
     Route: 048
     Dates: start: 20120201
  2. ALBUTEROL [Concomitant]
  3. ERYTHROMYCIN [Concomitant]
  4. BECLAZONE [Concomitant]

REACTIONS (3)
  - AGGRESSION [None]
  - ABNORMAL BEHAVIOUR [None]
  - MOOD ALTERED [None]
